FAERS Safety Report 5076503-6 (Version None)
Quarter: 2006Q3

REPORT INFORMATION
  Report Type: 
  Country: None (occurrence: None)
  Receive Date: 20060807
  Receipt Date: 20060725
  Transmission Date: 20061208
  Serious: Yes (Hospitalization)
  Sender: FDA-Public Use
  Company Number: 2006091165

PATIENT
  Age: 87 Year
  Sex: Male
  Weight: 78 kg

DRUGS (6)
  1. AMLODIPINE [Suspect]
     Indication: DRUG USE FOR UNKNOWN INDICATION
     Dosage: 5 MG (INTERVAL:  EVERY DAY), ORAL
     Route: 048
  2. DIGOXIN [Concomitant]
  3. PERINDOPRIL ERBUMINE [Concomitant]
  4. SERETIDE (FLUTICASONE PROPIONATE, SALMETEROL XINAFOATE) [Concomitant]
  5. ALPRAZOLAM [Concomitant]
  6. FUROSEMIDE [Concomitant]

REACTIONS (2)
  - FALL [None]
  - HYPOTENSION [None]
